FAERS Safety Report 8890851 (Version 3)
Quarter: 2012Q4

REPORT INFORMATION
  Report Type: 
  Country: HU (occurrence: HU)
  Receive Date: 20121106
  Receipt Date: 20121218
  Transmission Date: 20130627
  Serious: Yes (Hospitalization)
  Sender: FDA-Public Use
  Company Number: HU-ELI_LILLY_AND_COMPANY-HU201209004258

PATIENT
  Age: 66 Year
  Sex: Male

DRUGS (2)
  1. ZYPADHERA [Suspect]
     Indication: SCHIZOAFFECTIVE DISORDER
     Dosage: 300 mg, once in 4 weeks
     Route: 030
     Dates: start: 20120606, end: 20120831
  2. ZYPREXA [Suspect]
     Dosage: 11.25 mg, qd

REACTIONS (3)
  - Dysphagia [Not Recovered/Not Resolved]
  - Extrapyramidal disorder [Recovered/Resolved]
  - Wrong technique in drug usage process [Unknown]
